FAERS Safety Report 7910099-3 (Version None)
Quarter: 2011Q4

REPORT INFORMATION
  Report Type: 
  Country: None (occurrence: None)
  Receive Date: 20111111
  Receipt Date: 20111109
  Transmission Date: 20120403
  Serious: No
  Sender: FDA-Public Use
  Company Number: US-PFIZER INC-2011274974

PATIENT
  Sex: Male

DRUGS (2)
  1. CHANTIX [Suspect]
     Dosage: UNK
     Dates: start: 20110101
  2. CHANTIX [Suspect]
     Dosage: UNK
     Dates: start: 20090101

REACTIONS (2)
  - MALAISE [None]
  - DIZZINESS [None]
